FAERS Safety Report 10093163 (Version 1)
Quarter: 2014Q2

REPORT INFORMATION
  Report Type: Spontaneous
  Country: US (occurrence: US)
  Receive Date: 20140421
  Receipt Date: 20140421
  Transmission Date: 20141212
  Serious: No
  Sender: FDA-Public Use
  Company Number: US-SANOFI-AVENTIS-2013SA094105

PATIENT
  Age: 88 Year
  Sex: Female

DRUGS (3)
  1. ALLEGRA [Suspect]
     Indication: HYPERSENSITIVITY
     Route: 048
  2. ALLEGRA [Suspect]
     Indication: HYPERSENSITIVITY
     Route: 048
  3. ALLERGY MEDICATION [Concomitant]
     Indication: HYPERSENSITIVITY
     Route: 065

REACTIONS (3)
  - Influenza [Not Recovered/Not Resolved]
  - Dizziness [Not Recovered/Not Resolved]
  - Therapeutic reaction time decreased [Unknown]
